FAERS Safety Report 18716645 (Version 1)
Quarter: 2021Q1

REPORT INFORMATION
  Report Type: Spontaneous
  Country: CZ (occurrence: CZ)
  Receive Date: 20210108
  Receipt Date: 20210108
  Transmission Date: 20210419
  Serious: Yes (Other)
  Sender: FDA-Public Use
  Company Number: NVSC2020CZ345788

PATIENT
  Age: 63 Year
  Sex: Male

DRUGS (2)
  1. SOMATOLINE [Suspect]
     Active Substance: ESCIN\LEVOTHYROXINE
     Indication: NEOPLASM PROGRESSION
     Dosage: 120 MG,1
     Route: 058
     Dates: start: 201704, end: 201907
  2. EVEROLIMUS. [Suspect]
     Active Substance: EVEROLIMUS
     Indication: NEOPLASM PROGRESSION
     Dosage: 10 MG,QD
     Route: 065
     Dates: start: 201704

REACTIONS (2)
  - Disease progression [Unknown]
  - Carcinoid heart disease [Unknown]

NARRATIVE: CASE EVENT DATE: 201809
